FAERS Safety Report 8589633-9 (Version None)
Quarter: 2012Q3

REPORT INFORMATION
  Report Type: 
  Country: None (occurrence: None)
  Receive Date: 20120813
  Receipt Date: 20120807
  Transmission Date: 20120928
  Serious: Yes (Other)
  Sender: FDA-Public Use
  Company Number: US-PFIZER INC-2012192508

PATIENT
  Age: 75 Year
  Sex: Female
  Weight: 83.9 kg

DRUGS (6)
  1. CRESTOR [Concomitant]
     Indication: HYPERLIPIDAEMIA
     Dosage: UNK
  2. KEPPRA [Concomitant]
     Indication: CONVULSION
     Dosage: UNK
     Dates: start: 20120101
  3. LYRICA [Interacting]
     Indication: EPILEPSY
     Dosage: 25 MG, 2X/DAY
     Route: 048
  4. LYRICA [Suspect]
     Indication: NEUROPATHY PERIPHERAL
     Dosage: 25 MG, 1X/DAY
     Route: 048
  5. LYRICA [Interacting]
     Indication: CONVULSION
     Dosage: 225 MG, 3X/DAY
     Route: 048
  6. LAMICTAL [Interacting]
     Indication: CONVULSION
     Dosage: UNK
     Dates: end: 20120101

REACTIONS (6)
  - BLISTER [None]
  - SKIN DISORDER [None]
  - DYSPNOEA [None]
  - URTICARIA [None]
  - RASH [None]
  - DRUG INTERACTION [None]
